FAERS Safety Report 23711724 (Version 1)
Quarter: 2024Q2

REPORT INFORMATION
  Report Type: Spontaneous
  Country: US (occurrence: US)
  Receive Date: 20240405
  Receipt Date: 20240405
  Transmission Date: 20240716
  Serious: No
  Sender: FDA-Public Use
  Company Number: US-ABBVIE-5707213

PATIENT
  Sex: Female

DRUGS (1)
  1. LO LOESTRIN FE [Suspect]
     Active Substance: ETHINYL ESTRADIOL\NORETHINDRONE ACETATE
     Indication: Product used for unknown indication
     Dosage: FORM STRENGTH: NORETHINDRONE 1MG;ETHINYL ESTRAD 10?G;ETHINYL ESTRAD 10G
     Route: 048

REACTIONS (1)
  - Ovarian cyst [Unknown]
